FAERS Safety Report 25379321 (Version 1)
Quarter: 2025Q2

REPORT INFORMATION
  Report Type: Spontaneous
  Country: US (occurrence: US)
  Receive Date: 20250530
  Receipt Date: 20250530
  Transmission Date: 20250717
  Serious: Yes (Life-Threatening, Hospitalization, Other)
  Sender: AMGEN
  Company Number: US-AMGEN-USASP2025103399

PATIENT
  Sex: Male

DRUGS (1)
  1. IMDELLTRA [Suspect]
     Active Substance: TARLATAMAB-DLLE
     Indication: Neuroendocrine tumour of the lung
     Route: 065

REACTIONS (6)
  - Neuroendocrine tumour of the lung [Unknown]
  - Tumour flare [Unknown]
  - Immune effector cell-associated neurotoxicity syndrome [Unknown]
  - Dysgeusia [Unknown]
  - Decreased appetite [Unknown]
  - Off label use [Unknown]
